FAERS Safety Report 4917601-4 (Version None)
Quarter: 2006Q1

REPORT INFORMATION
  Report Type: 
  Country: None (occurrence: None)
  Receive Date: 20060215
  Receipt Date: 20060202
  Transmission Date: 20060701
  Serious: Yes (Hospitalization)
  Sender: FDA-Public Use
  Company Number: HQWYE364425MAR05

PATIENT
  Age: 64 Year
  Sex: Male
  Weight: 59.6 kg

DRUGS (4)
  1. RAPAMUNE [Suspect]
     Indication: PROPHYLAXIS AGAINST TRANSPLANT REJECTION
     Dosage: 5 MG 1X PER 1 DAY, ORAL
     Route: 048
     Dates: start: 20050127, end: 20050320
  2. CORTICOSTEROID NOS                     (CORTICOSTEROID NOS, ) [Suspect]
     Indication: PROPHYLAXIS AGAINST TRANSPLANT REJECTION
     Dosage: ORAL
     Route: 048
  3. TACROLIMUS                          (TACROLIMUS, ) [Suspect]
     Indication: PROPHYLAXIS AGAINST TRANSPLANT REJECTION
     Dosage: ORAL
     Route: 048
  4. ZENAPAX [Suspect]
     Indication: PROPHYLAXIS AGAINST TRANSPLANT REJECTION

REACTIONS (14)
  - ABDOMINAL PAIN [None]
  - ANAEMIA [None]
  - ASTHENIA [None]
  - BLOOD CREATININE INCREASED [None]
  - DIABETES MELLITUS NON-INSULIN-DEPENDENT [None]
  - DIARRHOEA [None]
  - DYSURIA [None]
  - GASTROINTESTINAL HAEMORRHAGE [None]
  - HYPOPHOSPHATAEMIA [None]
  - HYPOXIA [None]
  - NECROTISING FASCIITIS [None]
  - RECTAL ABSCESS [None]
  - RESPIRATORY FAILURE [None]
  - STREPTOCOCCAL BACTERAEMIA [None]
